FAERS Safety Report 9539324 (Version 1)
Quarter: 2013Q2

REPORT INFORMATION
  Report Type: Spontaneous
  Country: US (occurrence: None)
  Receive Date: 20130517
  Receipt Date: 20130517
  Transmission Date: 20140414
  Serious: No
  Sender: FDA-Public Use
  Company Number: 1000042881

PATIENT
  Age: 55 Year
  Sex: Female

DRUGS (1)
  1. VIIBRYD (VILAZODONE HYDROCHLORIDE) (10 MILLIGRAM, TABLETS) [Suspect]
     Route: 048
     Dates: start: 20130221, end: 20130222

REACTIONS (4)
  - Muscle twitching [None]
  - Muscle spasms [None]
  - Pain in jaw [None]
  - Back pain [None]
